FAERS Safety Report 11439303 (Version 1)
Quarter: 2015Q3

REPORT INFORMATION
  Report Type: Spontaneous
  Country: US (occurrence: US)
  Receive Date: 20150901
  Receipt Date: 20150901
  Transmission Date: 20151125
  Serious: No
  Sender: FDA-Public Use
  Company Number: US-ROCHE-1080034

PATIENT
  Sex: Female

DRUGS (6)
  1. VICTRELIS [Suspect]
     Active Substance: BOCEPREVIR
     Indication: HEPATITIS C
     Route: 065
     Dates: start: 20120418
  2. RIBASPHERE RIBAPAK [Suspect]
     Active Substance: RIBAVIRIN
     Route: 065
  3. ALBUTEROL INHALER [Concomitant]
     Active Substance: ALBUTEROL
  4. PEGASYS [Suspect]
     Active Substance: PEGINTERFERON ALFA-2A
     Indication: HEPATITIS C
     Route: 058
     Dates: start: 20120321
  5. RIBASPHERE RIBAPAK [Suspect]
     Active Substance: RIBAVIRIN
     Indication: HEPATITIS C
     Route: 065
     Dates: start: 20120321
  6. RIBASPHERE RIBAPAK [Suspect]
     Active Substance: RIBAVIRIN
     Route: 065

REACTIONS (8)
  - Fluid retention [Unknown]
  - White blood cell count decreased [Unknown]
  - Somnambulism [Unknown]
  - Muscle atrophy [Unknown]
  - Back pain [Unknown]
  - Fatigue [Unknown]
  - Weight increased [Unknown]
  - Memory impairment [Unknown]
